FAERS Safety Report 6081457-X (Version None)
Quarter: 2009Q1

REPORT INFORMATION
  Report Type: 
  Country: None (occurrence: None)
  Receive Date: 20090213
  Receipt Date: 20090201
  Transmission Date: 20090719
  Serious: Yes (Death, Life-Threatening)
  Sender: FDA-Public Use
  Company Number: 014243

PATIENT
  Age: 61 Year
  Sex: Female
  Weight: 85 kg

DRUGS (6)
  1. VERAPAMIL HCL [Suspect]
     Indication: HYPERTENSION
     Dosage: 360 MG, ONCE/DAY, ORAL
     Route: 048
  2. VERAPAMIL HCL [Suspect]
     Indication: MIGRAINE
     Dosage: 360 MG, ONCE/DAY, ORAL
     Route: 048
  3. PREMARIN [Concomitant]
  4. PANTOPRAZOLE SODIUM [Concomitant]
  5. MULTIVITAMIN (MULTIVITAMIN) [Concomitant]
  6. CALCIUNM SUPPLEMENTS [Concomitant]

REACTIONS (21)
  - ACCIDENTAL OVERDOSE [None]
  - BLOOD PRESSURE SYSTOLIC DECREASED [None]
  - BRADYCARDIA [None]
  - CALCIPHYLAXIS [None]
  - DERMATITIS BULLOUS [None]
  - DIZZINESS [None]
  - FEELING ABNORMAL [None]
  - GENERAL PHYSICAL HEALTH DETERIORATION [None]
  - HAEMODIALYSIS [None]
  - HEPATIC NECROSIS [None]
  - HYPERCALCAEMIA [None]
  - HYPERGLYCAEMIA [None]
  - HYPOTENSION [None]
  - ILEITIS [None]
  - INTESTINAL ISCHAEMIA [None]
  - MULTI-ORGAN FAILURE [None]
  - MYOCARDIAL ISCHAEMIA [None]
  - OLIGURIA [None]
  - RENAL TUBULAR NECROSIS [None]
  - SPLENIC INFARCTION [None]
  - VASOCONSTRICTION [None]
